FAERS Safety Report 7428691-1 (Version None)
Quarter: 2011Q2

REPORT INFORMATION
  Report Type: 
  Country: None (occurrence: None)
  Receive Date: 20110421
  Receipt Date: 20110415
  Transmission Date: 20111010
  Serious: No
  Sender: FDA-Public Use
  Company Number: US-BIOGENIDEC-2011BI014318

PATIENT
  Age: 55 Year
  Sex: Female

DRUGS (2)
  1. AVONEX [Suspect]
     Indication: MULTIPLE SCLEROSIS
     Route: 030
     Dates: start: 19970701, end: 20080301
  2. AVONEX [Suspect]
     Route: 030

REACTIONS (4)
  - EXPIRED DRUG ADMINISTERED [None]
  - PRESYNCOPE [None]
  - DEHYDRATION [None]
  - DIZZINESS [None]
